FAERS Safety Report 13563815 (Version 2)
Quarter: 2017Q3

REPORT INFORMATION
  Report Type: Spontaneous
  Country: JP (occurrence: JP)
  Receive Date: 20170519
  Receipt Date: 20170703
  Transmission Date: 20171127
  Serious: Yes (Hospitalization, Other)
  Sender: FDA-Public Use
  Company Number: JP-UNITED THERAPEUTICS-UNT-2016-003085

PATIENT
  Age: 35 Year
  Sex: Female
  Weight: 54 kg

DRUGS (8)
  1. REMODULIN [Suspect]
     Active Substance: TREPROSTINIL
     Indication: PULMONARY ARTERIAL HYPERTENSION
     Dosage: UNK
     Route: 041
     Dates: start: 20160216
  2. LASIX [Concomitant]
     Active Substance: FUROSEMIDE
     Indication: CARDIAC FAILURE
     Dosage: 20 MG DAILY DOSE
     Route: 048
     Dates: start: 2005
  3. ALDACTONE [Concomitant]
     Active Substance: SPIRONOLACTONE
     Indication: CARDIAC FAILURE
     Dosage: 50 MG DAILY DOSE
     Route: 048
     Dates: start: 2005
  4. OPSUMIT [Concomitant]
     Active Substance: MACITENTAN
     Indication: PULMONARY ARTERIAL HYPERTENSION
     Dosage: 10 MG DAILY DOSE
     Route: 048
     Dates: start: 201603
  5. AMIODARONE HYDROCHLORIDE. [Concomitant]
     Active Substance: AMIODARONE HYDROCHLORIDE
     Indication: ATRIAL FIBRILLATION
     Dosage: 100 MG DAILY DOSE
     Route: 048
     Dates: start: 201602
  6. DIART [Concomitant]
     Active Substance: AZOSEMIDE
     Indication: CARDIAC FAILURE
     Dosage: 60 MG DAILY DOSE
     Route: 048
     Dates: start: 2005
  7. SAMSCA [Concomitant]
     Active Substance: TOLVAPTAN
     Indication: CARDIAC FAILURE
     Dosage: 15 MG DAILY DOSE
     Route: 048
     Dates: start: 2015
  8. ADEMPAS [Concomitant]
     Active Substance: RIOCIGUAT
     Indication: PULMONARY ARTERIAL HYPERTENSION
     Dosage: 2.5 MG, TID
     Route: 048
     Dates: start: 201604

REACTIONS (8)
  - Device related infection [Unknown]
  - Pain [Unknown]
  - Cardiac failure [Unknown]
  - Atrial fibrillation [Unknown]
  - Vascular pain [Recovered/Resolved]
  - Headache [Unknown]
  - Arthralgia [Unknown]
  - Insomnia [Unknown]

NARRATIVE: CASE EVENT DATE: 2016
